FAERS Safety Report 18140902 (Version 3)
Quarter: 2020Q4

REPORT INFORMATION
  Report Type: Spontaneous
  Country: AU (occurrence: AU)
  Receive Date: 20200812
  Receipt Date: 20201118
  Transmission Date: 20210113
  Serious: Yes (Other)
  Sender: FDA-Public Use
  Company Number: AU-BRISTOL-MYERS SQUIBB COMPANY-BMS-2020-063989

PATIENT
  Age: 82 Year
  Sex: Male
  Weight: 100 kg

DRUGS (42)
  1. CARTIA [ACETYLSALICYLIC ACID] [Concomitant]
     Active Substance: ASPIRIN
     Indication: PRODUCT USED FOR UNKNOWN INDICATION
     Dosage: UNK
     Route: 065
  2. MEGAFOL [Concomitant]
     Active Substance: FOLIC ACID
     Indication: PRODUCT USED FOR UNKNOWN INDICATION
     Dosage: 500 MICROGRAM, BID
     Route: 065
  3. ULTIBRO BREEZHALER [Concomitant]
     Active Substance: GLYCOPYRRONIUM\INDACATEROL
     Indication: PRODUCT USED FOR UNKNOWN INDICATION
     Dosage: ONE DOSE DAILY AS DIRECTED
     Route: 065
  4. PNEUMOVAX 23 [Concomitant]
     Active Substance: PNEUMOCOCCAL VACCINE, POLYVALENT 23
     Indication: PRODUCT USED FOR UNKNOWN INDICATION
     Dosage: 2 DOSE, SUE
     Dates: start: 20071123
  5. BOOSTRIX [Concomitant]
     Active Substance: TETANUS TOXOID, REDUCED DIPHTHERIA TOXOID AND ACELLULAR PERTUSSIS VACCINE, ADSORBED ANTIGENS
     Dosage: 1 DOSE
     Route: 065
     Dates: start: 20161115
  6. LIPITOR [Concomitant]
     Active Substance: ATORVASTATIN CALCIUM
     Indication: PRODUCT USED FOR UNKNOWN INDICATION
     Dosage: TAKE 1 NOCTE
     Route: 065
  7. FLUVAX [Concomitant]
     Active Substance: INFLUENZA VIRUS VACCINE
     Dosage: 1 DOSE
     Route: 065
     Dates: start: 20120326
  8. DIABEX [Concomitant]
     Active Substance: METFORMIN HYDROCHLORIDE
     Indication: PRODUCT USED FOR UNKNOWN INDICATION
     Dosage: 500 MILLIGRAM, BID
     Route: 065
  9. PARIET [Concomitant]
     Active Substance: RABEPRAZOLE SODIUM
     Indication: PRODUCT USED FOR UNKNOWN INDICATION
     Dosage: 20 MILLIGRAM, ONE DAILY AS NEEDED
     Route: 065
  10. PREDNISONE. [Concomitant]
     Active Substance: PREDNISONE
     Indication: PRODUCT USED FOR UNKNOWN INDICATION
     Dosage: 5 MILLIGRAM, TAKE 1 DAILY FOR 3 DAYS THEN A HALF DAILY FOR 3 DAYS THEN STOP
     Route: 065
  11. VAXIGRIP [Concomitant]
     Active Substance: INFLUENZA VIRUS VACCINE
     Dosage: JU
     Route: 065
     Dates: start: 20090320
  12. PANVAX [Concomitant]
     Indication: PRODUCT USED FOR UNKNOWN INDICATION
     Dosage: 1 DOSE
     Route: 065
     Dates: start: 20091104
  13. FLUARIX TETRA [Concomitant]
     Active Substance: INFLUENZA VIRUS VACCINE
     Indication: PRODUCT USED FOR UNKNOWN INDICATION
     Dosage: 1 DOSE
     Route: 065
     Dates: start: 20160419
  14. ORENCIA [Suspect]
     Active Substance: ABATACEPT
     Indication: RHEUMATOID ARTHRITIS
     Dosage: 250 MILLIGRAM, QWK (EVERY MONDAY)
     Route: 058
  15. NITROLINGUAL [Concomitant]
     Active Substance: NITROGLYCERIN
     Indication: PRODUCT USED FOR UNKNOWN INDICATION
     Dosage: 1 SPRAY AT ATHE ONSET OF ATTACK MAY REPEAT ONCE IF NO RELIEF WITHIN 5 MIN
  16. FLUVAX [Concomitant]
     Active Substance: INFLUENZA VIRUS VACCINE
     Dosage: SJP
     Route: 065
     Dates: start: 20060401
  17. FLUVAX [Concomitant]
     Active Substance: INFLUENZA VIRUS VACCINE
     Dosage: 1 DOSE
     Route: 065
     Dates: start: 20110404
  18. FLUVAX [Concomitant]
     Active Substance: INFLUENZA VIRUS VACCINE
     Dosage: 1 DOSE
     Route: 065
     Dates: start: 20150330
  19. FLUAD NOS [Concomitant]
     Active Substance: INFLUENZA VIRUS VACCINE
     Indication: PRODUCT USED FOR UNKNOWN INDICATION
     Dosage: 1 DOSE
     Dates: start: 20180411
  20. CYMBALTA [Concomitant]
     Active Substance: DULOXETINE HYDROCHLORIDE
     Indication: PAIN
     Dosage: UNK
     Route: 065
  21. NOTEN [Concomitant]
     Active Substance: ATENOLOL
     Indication: PRODUCT USED FOR UNKNOWN INDICATION
     Dosage: 50 MILLIGRAM, 1 IN THE MORNING
     Route: 065
  22. INFLUENZA [Concomitant]
     Active Substance: INFLUENZA VIRUS VACCINE
     Indication: PRODUCT USED FOR UNKNOWN INDICATION
     Dosage: UNK
     Route: 065
     Dates: start: 20030514
  23. METHOTREXATE. [Concomitant]
     Active Substance: METHOTREXATE
     Indication: PRODUCT USED FOR UNKNOWN INDICATION
     Dosage: 10 MILLIGRAM (2 TABLETS ONCE A WEEK)
     Route: 048
  24. PALEXIA [Concomitant]
     Active Substance: TAPENTADOL HYDROCHLORIDE
     Indication: PRODUCT USED FOR UNKNOWN INDICATION
     Dosage: 150 MILLIGRAM
     Route: 065
  25. PALEXIA [Concomitant]
     Active Substance: TAPENTADOL HYDROCHLORIDE
     Dosage: 50 MILLIGRAM
     Route: 065
  26. PNEUMOVAX 23 [Concomitant]
     Active Substance: PNEUMOCOCCAL VACCINE, POLYVALENT 23
     Indication: PRODUCT USED FOR UNKNOWN INDICATION
     Dosage: UNK
     Route: 065
     Dates: start: 20021213
  27. FLUVAX [Concomitant]
     Active Substance: INFLUENZA VIRUS VACCINE
     Indication: PRODUCT USED FOR UNKNOWN INDICATION
     Dosage: GIVEN BY SJP
     Route: 065
     Dates: start: 20040408
  28. CYMBALTA [Concomitant]
     Active Substance: DULOXETINE HYDROCHLORIDE
     Indication: DEPRESSION
  29. FLUVAX [Concomitant]
     Active Substance: INFLUENZA VIRUS VACCINE
     Dosage: DB
     Route: 065
     Dates: start: 20050415
  30. FLUVAX [Concomitant]
     Active Substance: INFLUENZA VIRUS VACCINE
     Dosage: 1 DOSE
     Route: 065
     Dates: start: 20130322
  31. VAXIGRIP [Concomitant]
     Active Substance: INFLUENZA VIRUS VACCINE
     Dosage: 1 DOSE
     Route: 065
     Dates: start: 20140327
  32. BOOSTRIX [Concomitant]
     Active Substance: TETANUS TOXOID, REDUCED DIPHTHERIA TOXOID AND ACELLULAR PERTUSSIS VACCINE, ADSORBED ANTIGENS
     Indication: PRODUCT USED FOR UNKNOWN INDICATION
     Dosage: 1 DOSE
     Route: 065
     Dates: start: 20110204
  33. FLUAD NOS [Concomitant]
     Active Substance: INFLUENZA VIRUS VACCINE
     Dosage: 1 DOSE
     Route: 065
     Dates: start: 20190501
  34. COVERSYL [PERINDOPRIL ERBUMINE] [Concomitant]
     Active Substance: PERINDOPRIL ERBUMINE
     Indication: PRODUCT USED FOR UNKNOWN INDICATION
     Dosage: ONE AND A HALF DAILY
     Route: 065
  35. FLOMAXTRA [Concomitant]
     Active Substance: TAMSULOSIN HYDROCHLORIDE
     Indication: PRODUCT USED FOR UNKNOWN INDICATION
     Dosage: DAILY
     Route: 065
  36. LYRICA [Concomitant]
     Active Substance: PREGABALIN
     Indication: PRODUCT USED FOR UNKNOWN INDICATION
     Dosage: 25 MILLIGRAM, TAKE 1 IN THE MORNING
     Route: 065
  37. MOBIC [Concomitant]
     Active Substance: MELOXICAM
     Indication: PRODUCT USED FOR UNKNOWN INDICATION
     Dosage: 7.5 MILLIGRAM
     Route: 065
  38. EFUDIX [Concomitant]
     Active Substance: FLUOROURACIL
     Indication: PRODUCT USED FOR UNKNOWN INDICATION
     Dosage: 20 GRAM, APPLY 2 X PER DAY FOR 2-4 WKS OR UNTIL THE CORROSIVE STAGE CEASE IF PAINFUL OR BLISTERING
  39. FLUVAX [Concomitant]
     Active Substance: INFLUENZA VIRUS VACCINE
     Dosage: SJP
     Route: 065
     Dates: start: 20070328
  40. FLUVAX [Concomitant]
     Active Substance: INFLUENZA VIRUS VACCINE
     Dosage: 1 DOSE
     Route: 065
     Dates: start: 20100322
  41. VAXIGRIP [Concomitant]
     Active Substance: INFLUENZA VIRUS VACCINE
     Indication: PRODUCT USED FOR UNKNOWN INDICATION
     Dosage: JU
     Dates: start: 20080327
  42. AFLURIA NOS [Concomitant]
     Active Substance: INFLUENZA VIRUS VACCINE TRIVALENT TYPE A+B AFLURIA
     Indication: PRODUCT USED FOR UNKNOWN INDICATION
     Dosage: 1 DOSE
     Route: 065
     Dates: start: 20170324

REACTIONS (2)
  - Skin cancer [Unknown]
  - Off label use [Unknown]

NARRATIVE: CASE EVENT DATE: 202006
